FAERS Safety Report 9916136 (Version 1)
Quarter: 2014Q1

REPORT INFORMATION
  Report Type: Spontaneous
  Country: CA (occurrence: None)
  Receive Date: 20140219
  Receipt Date: 20140219
  Transmission Date: 20141002
  Serious: Yes (Disabling, Other)
  Sender: FDA-Public Use
  Company Number: None

PATIENT
  Age: 14 Year
  Sex: Female
  Weight: 60 kg

DRUGS (2)
  1. INTUNIV [Suspect]
     Indication: PSYCHOMOTOR HYPERACTIVITY
     Route: 048
     Dates: start: 20131204, end: 20140214
  2. INTUNIV [Suspect]
     Indication: DISTURBANCE IN ATTENTION
     Route: 048
     Dates: start: 20131204, end: 20140214

REACTIONS (11)
  - Tic [None]
  - Posturing [None]
  - Constipation [None]
  - Decreased appetite [None]
  - Dry mouth [None]
  - Fluid intake reduced [None]
  - Chromaturia [None]
  - Irritability [None]
  - Initial insomnia [None]
  - Middle insomnia [None]
  - Somnolence [None]
